FAERS Safety Report 25010859 (Version 1)
Quarter: 2025Q1

REPORT INFORMATION
  Report Type: Spontaneous
  Country: CN (occurrence: CN)
  Receive Date: 20250225
  Receipt Date: 20250225
  Transmission Date: 20250408
  Serious: Yes (Hospitalization, Other)
  Sender: BEIGENE
  Company Number: CN-BEIGENE-BGN-2025-002735

PATIENT
  Age: 79 Year
  Weight: 70 kg

DRUGS (7)
  1. TISLELIZUMAB [Suspect]
     Active Substance: TISLELIZUMAB
     Indication: Non-small cell lung cancer
     Dosage: 200 MILLIGRAM, Q3WK
  2. TISLELIZUMAB [Suspect]
     Active Substance: TISLELIZUMAB
     Dosage: 200 MILLIGRAM, Q3WK
     Route: 041
  3. TISLELIZUMAB [Suspect]
     Active Substance: TISLELIZUMAB
     Dosage: 200 MILLIGRAM, Q3WK
     Route: 041
  4. TISLELIZUMAB [Suspect]
     Active Substance: TISLELIZUMAB
     Dosage: 200 MILLIGRAM, Q3WK
  5. PACLITAXEL [Concomitant]
     Active Substance: PACLITAXEL
     Indication: Non-small cell lung cancer
     Route: 041
  6. PACLITAXEL [Concomitant]
     Active Substance: PACLITAXEL
  7. DENOSUMAB [Concomitant]
     Active Substance: DENOSUMAB
     Indication: Osteopenia

REACTIONS (3)
  - Central hypothyroidism [Recovering/Resolving]
  - Pneumonia [Unknown]
  - Chest pain [Unknown]
